FAERS Safety Report 19596442 (Version 1)
Quarter: 2021Q3

REPORT INFORMATION
  Report Type: Spontaneous
  Country: CA (occurrence: CA)
  Receive Date: 20210723
  Receipt Date: 20210723
  Transmission Date: 20211014
  Serious: Yes (Hospitalization)
  Sender: FDA-Public Use
  Company Number: CA-DRREDDYS-LIT/CAN/21/0138003

PATIENT
  Age: 63 Year
  Sex: Male

DRUGS (2)
  1. FONDAPARINUX SODIUM. [Suspect]
     Active Substance: FONDAPARINUX SODIUM
     Indication: PULMONARY ARTERY THROMBOSIS
     Dosage: 10 MG/DAY
     Route: 058
  2. HEPARIN [Concomitant]
     Active Substance: HEPARIN SODIUM
     Indication: PULMONARY ARTERY THROMBOSIS

REACTIONS (1)
  - Drug ineffective [Unknown]
